FAERS Safety Report 7747807-0 (Version None)
Quarter: 2011Q3

REPORT INFORMATION
  Report Type: 
  Country: None (occurrence: None)
  Receive Date: 20110913
  Receipt Date: 20110907
  Transmission Date: 20111222
  Serious: Yes (Other)
  Sender: FDA-Public Use
  Company Number: GR-PFIZER INC-GR-WYE-G06731610

PATIENT
  Age: 56 Year
  Sex: Male
  Weight: 75 kg

DRUGS (6)
  1. PIPERACILLIN AND TAZOBACTAM [Suspect]
     Indication: LOBAR PNEUMONIA
     Dosage: 4.5 G, 4X/DAY
     Route: 042
     Dates: start: 20100709, end: 20100711
  2. LIPITOR [Concomitant]
     Indication: CORONARY ARTERY DISEASE
     Route: 048
  3. ENALAPRIL MALEATE [Concomitant]
     Indication: CORONARY ARTERY DISEASE
     Route: 048
  4. LOPRESSOR [Concomitant]
     Indication: CORONARY ARTERY DISEASE
     Route: 048
  5. SALOSPIR [Concomitant]
     Indication: CORONARY ARTERY DISEASE
     Route: 048
  6. PLAVIX [Concomitant]
     Indication: CORONARY ARTERY DISEASE
     Route: 048

REACTIONS (4)
  - RASH MACULO-PAPULAR [None]
  - DERMATITIS ALLERGIC [None]
  - URTICARIA [None]
  - VASCULITIC RASH [None]
